FAERS Safety Report 10516659 (Version 1)
Quarter: 2014Q4

REPORT INFORMATION
  Report Type: Spontaneous
  Country: IT (occurrence: IT)
  Receive Date: 20141014
  Receipt Date: 20141014
  Transmission Date: 20150528
  Serious: Yes (Other)
  Sender: FDA-Public Use
  Company Number: IT-SA-2014SA136932

PATIENT
  Age: 82 Year
  Sex: Female

DRUGS (1)
  1. CLOPIDOGREL BISULFATE. [Suspect]
     Active Substance: CLOPIDOGREL BISULFATE
     Route: 048
     Dates: start: 20140701

REACTIONS (5)
  - Toxicity to various agents [Unknown]
  - Gastroenteritis [Unknown]
  - Dehydration [Unknown]
  - Skin disorder [Unknown]
  - Prerenal failure [Unknown]
